FAERS Safety Report 5921324-2 (Version None)
Quarter: 2008Q4

REPORT INFORMATION
  Report Type: 
  Country: None (occurrence: None)
  Receive Date: 20081016
  Receipt Date: 20081010
  Transmission Date: 20090506
  Serious: Yes (Hospitalization)
  Sender: FDA-Public Use
  Company Number: US-MERCK-0810USA02388

PATIENT
  Age: 65 Year
  Sex: Male

DRUGS (2)
  1. PRINIVIL [Suspect]
     Route: 048
  2. [THERAPY UNSPECIFIED] [Suspect]
     Indication: IMMUNOSUPPRESSION
     Route: 065

REACTIONS (4)
  - ASCITES [None]
  - GASTROINTESTINAL DISORDER [None]
  - SMALL BOWEL ANGIOEDEMA [None]
  - VISCERAL CONGESTION [None]
